FAERS Safety Report 7011761-X (Version None)
Quarter: 2010Q3

REPORT INFORMATION
  Report Type: 
  Country: None (occurrence: None)
  Receive Date: 20100923
  Receipt Date: 20090728
  Transmission Date: 20110219
  Serious: No
  Sender: FDA-Public Use
  Company Number: US-WYE-H10097809

PATIENT
  Sex: Female
  Weight: 48.12 kg

DRUGS (6)
  1. PREMARIN [Suspect]
     Indication: HORMONE THERAPY
     Dosage: 0.45 MG
     Route: 048
     Dates: start: 19720101, end: 20081101
  2. ADVAIR DISKUS 100/50 [Concomitant]
  3. HYDROCHLOROTHIAZIDE [Concomitant]
  4. SPIRIVA [Concomitant]
  5. WELLBUTRIN [Concomitant]
  6. SYNTHROID [Concomitant]

REACTIONS (2)
  - GLOSSODYNIA [None]
  - ORAL DISCOMFORT [None]
